FAERS Safety Report 4383159-4 (Version None)
Quarter: 2004Q2

REPORT INFORMATION
  Report Type: 
  Country: None (occurrence: None)
  Receive Date: 20040622
  Receipt Date: 20040622
  Transmission Date: 20050107
  Serious: Yes (Hospitalization)
  Sender: FDA-Public Use
  Company Number: None

PATIENT
  Age: 57 Year
  Sex: Male
  Weight: 51.7101 kg

DRUGS (3)
  1. CELEBREX [Suspect]
  2. ROXANOL [Concomitant]
  3. MAGIC MOUTHWASH [Concomitant]

REACTIONS (5)
  - DRUG INEFFECTIVE [None]
  - HAEMOGLOBIN DECREASED [None]
  - LUNG INFECTION [None]
  - METASTASES TO LUNG [None]
  - NEOPLASM RECURRENCE [None]
